FAERS Safety Report 5190295-1 (Version None)
Quarter: 2006Q4

REPORT INFORMATION
  Report Type: 
  Country: None (occurrence: None)
  Receive Date: 20061222
  Receipt Date: 20061129
  Transmission Date: 20070319
  Serious: Yes (Hospitalization)
  Sender: FDA-Public Use
  Company Number: PHEH2006US14716

PATIENT
  Age: 31 Year
  Sex: Female

DRUGS (1)
  1. EXJADE [Suspect]
     Indication: IRON OVERLOAD
     Dosage: 1000 MG, QD
     Route: 048
     Dates: start: 20061111, end: 20061112

REACTIONS (3)
  - DYSPNOEA [None]
  - HYPERTENSION [None]
  - RECTAL HAEMORRHAGE [None]
